FAERS Safety Report 24036724 (Version 1)
Quarter: 2024Q3

REPORT INFORMATION
  Report Type: Spontaneous
  Country: US (occurrence: US)
  Receive Date: 20240701
  Receipt Date: 20240701
  Transmission Date: 20241016
  Serious: Yes (Other)
  Sender: MERCK
  Company Number: US-009507513-2407USA000267

PATIENT
  Sex: Female

DRUGS (2)
  1. KEYTRUDA [Suspect]
     Active Substance: PEMBROLIZUMAB
     Indication: Ovarian cancer
  2. BENADRYL [Suspect]
     Active Substance: DIPHENHYDRAMINE HYDROCHLORIDE
     Indication: Premedication

REACTIONS (7)
  - Hysterectomy [Unknown]
  - Arthritis [Unknown]
  - Fibromyalgia [Unknown]
  - Hypotension [Unknown]
  - Ill-defined disorder [Unknown]
  - Speech disorder [Unknown]
  - Asthenopia [Unknown]
